FAERS Safety Report 6665115-6 (Version None)
Quarter: 2010Q2

REPORT INFORMATION
  Report Type: 
  Country: None (occurrence: None)
  Receive Date: 20100402
  Receipt Date: 20100322
  Transmission Date: 20101027
  Serious: No
  Sender: FDA-Public Use
  Company Number: 2010BI004088

PATIENT
  Sex: Female

DRUGS (1)
  1. TYSABRI [Suspect]
     Indication: MULTIPLE SCLEROSIS
     Route: 042
     Dates: start: 20080601

REACTIONS (10)
  - BALANCE DISORDER [None]
  - DYSKINESIA [None]
  - HALLUCINATION, AUDITORY [None]
  - HALLUCINATION, VISUAL [None]
  - MOUTH INJURY [None]
  - MULTIPLE SCLEROSIS RELAPSE [None]
  - MUSCLE SPASMS [None]
  - PAIN IN EXTREMITY [None]
  - SLEEP DISORDER [None]
  - TREMOR [None]
